FAERS Safety Report 4498383-X (Version None)
Quarter: 2004Q4

REPORT INFORMATION
  Report Type: 
  Country: None (occurrence: None)
  Receive Date: 20041105
  Receipt Date: 20041025
  Transmission Date: 20050328
  Serious: No
  Sender: FDA-Public Use
  Company Number: 2004AC00681

PATIENT
  Age: 58 Year
  Sex: Male

DRUGS (1)
  1. ZOLMITRIPTAN [Suspect]

REACTIONS (10)
  - ANGIODYSPLASIA [None]
  - CAROTID ARTERY DISSECTION [None]
  - CAROTID ARTERY OCCLUSION [None]
  - CEREBRAL DISORDER [None]
  - CEREBROVASCULAR ACCIDENT [None]
  - DYSARTHRIA [None]
  - HEMIPLEGIA TRANSIENT [None]
  - THROMBOSIS [None]
  - TRANSIENT ISCHAEMIC ATTACK [None]
  - VASOSPASM [None]
